FAERS Safety Report 7036181-3 (Version None)
Quarter: 2010Q4

REPORT INFORMATION
  Report Type: 
  Country: None (occurrence: None)
  Receive Date: 20101008
  Receipt Date: 20100708
  Transmission Date: 20110411
  Serious: No
  Sender: FDA-Public Use
  Company Number: US-BRISTOL-MYERS SQUIBB COMPANY-15183767

PATIENT
  Age: 87 Year
  Sex: Female

DRUGS (4)
  1. AVAPRO [Suspect]
  2. LIPITOR [Concomitant]
  3. VITAMINS [Concomitant]
  4. XALATAN [Concomitant]
     Dosage: EYE DROPS

REACTIONS (1)
  - CARBOHYDRATE ANTIGEN 125 INCREASED [None]
